FAERS Safety Report 7626065-1 (Version None)
Quarter: 2011Q3

REPORT INFORMATION
  Report Type: 
  Country: None (occurrence: None)
  Receive Date: 20110701
  Receipt Date: 20100527
  Transmission Date: 20111222
  Serious: Yes (Hospitalization)
  Sender: FDA-Public Use
  Company Number: 7006470

PATIENT
  Age: 43 Year
  Sex: Female

DRUGS (1)
  1. REBIF [Suspect]
     Indication: MULTIPLE SCLEROSIS
     Dates: start: 20091214, end: 20100101

REACTIONS (8)
  - PAIN [None]
  - FATIGUE [None]
  - BONE PAIN [None]
  - NAUSEA [None]
  - MULTIPLE SCLEROSIS RELAPSE [None]
  - CONDITION AGGRAVATED [None]
  - INSOMNIA [None]
  - MULTIPLE SCLEROSIS [None]
